FAERS Safety Report 6837268-8 (Version None)
Quarter: 2010Q3

REPORT INFORMATION
  Report Type: 
  Country: None (occurrence: None)
  Receive Date: 20100713
  Receipt Date: 20070507
  Transmission Date: 20110219
  Serious: No
  Sender: FDA-Public Use
  Company Number: US-PFIZER INC-2007038144

PATIENT
  Sex: Male
  Weight: 112.04 kg

DRUGS (12)
  1. CHANTIX [Suspect]
     Indication: SMOKING CESSATION THERAPY
     Dates: start: 20070301
  2. DEPAKOTE [Concomitant]
  3. SEROQUEL [Concomitant]
  4. RISPERDAL [Concomitant]
  5. CARBAMAZEPINE [Concomitant]
  6. NORVASC [Concomitant]
  7. LISINOPRIL [Concomitant]
  8. LEVOTHYROXINE [Concomitant]
  9. NEXIUM [Concomitant]
  10. HYDROCHLOROTHIAZIDE [Concomitant]
  11. ZYRTEC [Concomitant]
  12. LOVASTATIN [Concomitant]

REACTIONS (1)
  - URTICARIA [None]
